FAERS Safety Report 4442949-X (Version None)
Quarter: 2004Q3

REPORT INFORMATION
  Report Type: 
  Country: None (occurrence: None)
  Receive Date: 20040907
  Receipt Date: 20040907
  Transmission Date: 20050211
  Serious: Yes (Disabling)
  Sender: FDA-Public Use
  Company Number: None

PATIENT
  Age: 9 Month
  Sex: Male

DRUGS (1)
  1. KETAMINE HCL [Suspect]
     Indication: SURGERY
     Dosage: INTRAVENOUS
     Route: 042
     Dates: start: 19850201, end: 19850201

REACTIONS (1)
  - SCHIZOPHRENIA [None]
